FAERS Safety Report 5131167-8 (Version None)
Quarter: 2006Q4

REPORT INFORMATION
  Report Type: 
  Country: None (occurrence: None)
  Receive Date: 20060830
  Receipt Date: 20050928
  Transmission Date: 20070319
  Serious: Yes (Hospitalization)
  Sender: FDA-Public Use
  Company Number: 200511354BWH

PATIENT

DRUGS (1)
  1. TRASYLOL [Suspect]
     Indication: DRUG USE FOR UNKNOWN INDICATION
     Dosage: INTRAVENOUS BOLUS
     Route: 040
     Dates: start: 20050601

REACTIONS (1)
  - ANAPHYLACTIC REACTION [None]
